FAERS Safety Report 8939688 (Version 2)
Quarter: 2012Q4

REPORT INFORMATION
  Report Type: Report from Study
  Country: FR (occurrence: FR)
  Receive Date: 20121130
  Receipt Date: 20121217
  Transmission Date: 20130627
  Serious: Yes (Death, Hospitalization)
  Sender: FDA-Public Use
  Company Number: FR-ROCHE-1161466

PATIENT
  Age: 56 Year
  Sex: Male
  Weight: 103 kg

DRUGS (8)
  1. RITUXIMAB [Suspect]
     Indication: ACUTE LYMPHOCYTIC LEUKAEMIA
     Route: 042
     Dates: start: 20120713, end: 20120719
  2. DAUNORUBICIN [Suspect]
     Indication: ACUTE LYMPHOCYTIC LEUKAEMIA
     Route: 042
     Dates: start: 20120713, end: 20120728
  3. DAUNORUBICIN [Suspect]
     Route: 042
     Dates: start: 20120713, end: 20120728
  4. VINCRISTINE [Suspect]
     Indication: ACUTE LYMPHOCYTIC LEUKAEMIA
     Route: 042
     Dates: start: 20120713, end: 20120808
  5. CYCLOPHOSPHAMIDE [Suspect]
     Indication: ACUTE LYMPHOCYTIC LEUKAEMIA
     Route: 042
     Dates: start: 20120713, end: 20120729
  6. CYCLOPHOSPHAMIDE [Suspect]
     Route: 042
     Dates: start: 20120713, end: 20120729
  7. L-ASPARAGINASE [Suspect]
     Indication: ACUTE LYMPHOCYTIC LEUKAEMIA
     Dosage: dose : 6000 UI/m2
     Route: 042
     Dates: start: 20120720, end: 20120722
  8. VINDESINE [Suspect]
     Indication: ACUTE LYMPHOCYTIC LEUKAEMIA
     Route: 042
     Dates: start: 20120824, end: 20120914

REACTIONS (2)
  - Systemic candida [Fatal]
  - Septic shock [Fatal]
